FAERS Safety Report 9476773 (Version 2)
Quarter: 2014Q3

REPORT INFORMATION
  Report Type: Spontaneous
  Country: US (occurrence: US)
  Receive Date: 20130826
  Receipt Date: 20140826
  Transmission Date: 20150326
  Serious: Yes (Hospitalization)
  Sender: FDA-Public Use
  Company Number: US-BRISTOL-MYERS SQUIBB COMPANY-19043512

PATIENT
  Age: 68 Year
  Sex: Female

DRUGS (5)
  1. LIDOCAINE. [Suspect]
     Active Substance: LIDOCAINE
     Dosage: LIDOCAINE 1%
     Route: 008
  2. KENALOG-40 [Suspect]
     Active Substance: TRIAMCINOLONE ACETONIDE
     Indication: RADICULITIS
     Route: 008
     Dates: start: 2013
  3. OMNIPAQUE [Suspect]
     Active Substance: IOHEXOL
     Route: 008
  4. KENALOG-40 [Suspect]
     Active Substance: TRIAMCINOLONE ACETONIDE
     Indication: SPINAL OSTEOARTHRITIS
     Route: 008
     Dates: start: 2013
  5. SODIUM CHLORIDE. [Suspect]
     Active Substance: SODIUM CHLORIDE
     Dosage: INJECTION
     Route: 008

REACTIONS (2)
  - Off label use [Unknown]
  - Meningitis bacterial [Recovered/Resolved]

NARRATIVE: CASE EVENT DATE: 20130530
